FAERS Safety Report 8027672-7 (Version None)
Quarter: 2012Q1

REPORT INFORMATION
  Report Type: 
  Country: None (occurrence: None)
  Receive Date: 20120104
  Receipt Date: 20111220
  Transmission Date: 20120608
  Serious: Yes (Hospitalization, Other)
  Sender: FDA-Public Use
  Company Number: CIP10002633

PATIENT
  Age: 86 Year
  Sex: Female

DRUGS (8)
  1. LIPOVAS /00848101/ (SIMVASTATIN) [Concomitant]
  2. ENALAPRIL MALEATE [Concomitant]
  3. CARVEDILOL [Concomitant]
  4. ONE-ALPHA (ALFACALCIDOL) [Concomitant]
  5. ERGOCALCIFEROL [Concomitant]
  6. AMLODIPINE BESYLATE [Concomitant]
  7. LANSOPRAZOLE [Concomitant]
  8. RISEDRONATE SODIUM [Suspect]
     Indication: OSTEOPOROSIS
     Dosage: 2.5 MG DAILY, ORAL ; ORAL
     Route: 048
     Dates: start: 20040701, end: 20090514

REACTIONS (3)
  - FEMUR FRACTURE [None]
  - FALL [None]
  - ABASIA [None]
